FAERS Safety Report 18443930 (Version 1)
Quarter: 2020Q4

REPORT INFORMATION
  Report Type: Spontaneous
  Country: CH (occurrence: CH)
  Receive Date: 20201030
  Receipt Date: 20201030
  Transmission Date: 20210114
  Serious: Yes (Death, Other)
  Sender: FDA-Public Use
  Company Number: CH-AMGEN-CHESP2020173553

PATIENT
  Age: 34 Year
  Sex: Male

DRUGS (7)
  1. ENCORAFENIB [Concomitant]
     Active Substance: ENCORAFENIB
  2. BRAFTOVI [Concomitant]
     Active Substance: ENCORAFENIB
  3. VINDESINE [Concomitant]
     Active Substance: VINDESINE
  4. IPILIMUMAB [Concomitant]
     Active Substance: IPILIMUMAB
  5. DABRAFENIB [Concomitant]
     Active Substance: DABRAFENIB
  6. MEKTOVI [Concomitant]
     Active Substance: BINIMETINIB
  7. XGEVA [Suspect]
     Active Substance: DENOSUMAB
     Indication: METASTASES TO BONE
     Dosage: UNK
     Route: 065

REACTIONS (1)
  - Malignant melanoma [Fatal]
